FAERS Safety Report 6371449-5 (Version None)
Quarter: 2009Q3

REPORT INFORMATION
  Report Type: 
  Country: None (occurrence: None)
  Receive Date: 20090923
  Receipt Date: 20070927
  Transmission Date: 20100115
  Serious: No
  Sender: FDA-Public Use
  Company Number: US-ASTRAZENECA-2007UW09451

PATIENT
  Age: 465 Month
  Sex: Female
  Weight: 87.5 kg

DRUGS (23)
  1. SEROQUEL [Suspect]
     Indication: SLEEP DISORDER
     Dosage: 25 MG-175 MG
     Route: 048
     Dates: start: 20010529
  2. SEROQUEL [Suspect]
     Dosage: 175MG - 200MG PER DAY
     Route: 048
     Dates: start: 20010801, end: 20030901
  3. ABILIFY [Concomitant]
     Dates: start: 20060201, end: 20060501
  4. ABILIFY [Concomitant]
     Dates: start: 20060601, end: 20060901
  5. GEODON [Concomitant]
     Dates: start: 20070101
  6. RISPERDAL [Concomitant]
     Dosage: .25 TO 3 MG
     Dates: start: 20000501, end: 20030501
  7. ZYPREXA [Concomitant]
     Dates: start: 20040401, end: 20040601
  8. SYNTHROID [Concomitant]
  9. PAXIL [Concomitant]
  10. GLUCOPHAGE XR [Concomitant]
  11. LAMICTAL [Concomitant]
  12. WELLBUTRIN XL [Concomitant]
  13. KLONOPIN [Concomitant]
  14. VISTARIL [Concomitant]
  15. KENALOG [Concomitant]
  16. VALTREX [Concomitant]
  17. LORTAB [Concomitant]
  18. FEOSOL [Concomitant]
  19. HALDOL [Concomitant]
  20. TYLENOL (CAPLET) [Concomitant]
  21. BENADRYL [Concomitant]
  22. GLUCAGEN [Concomitant]
  23. NOVOLOG [Concomitant]

REACTIONS (3)
  - HYPOTHYROIDISM [None]
  - OBESITY [None]
  - TYPE 2 DIABETES MELLITUS [None]
